FAERS Safety Report 4965723-4 (Version None)
Quarter: 2006Q2

REPORT INFORMATION
  Report Type: 
  Country: None (occurrence: None)
  Receive Date: 20060407
  Receipt Date: 20060328
  Transmission Date: 20061013
  Serious: Yes (Hospitalization, Other)
  Sender: FDA-Public Use
  Company Number: GB-JNJFOC-20060306946

PATIENT
  Sex: Female
  Weight: 69 kg

DRUGS (8)
  1. REMICADE [Suspect]
     Indication: RHEUMATOID ARTHRITIS
     Route: 042
  2. METHOTREXATE [Concomitant]
     Route: 065
  3. ALENDRONATE SODIUM [Concomitant]
     Route: 065
  4. CELECOXIB [Concomitant]
     Route: 065
  5. FOLIC ACID [Concomitant]
     Route: 065
  6. LANSOPRAZOLE [Concomitant]
     Route: 065
  7. LICINOPRIL [Concomitant]
     Route: 065
  8. TRAMADOL HCL [Concomitant]
     Route: 065

REACTIONS (3)
  - DEHYDRATION [None]
  - FALL [None]
  - MIGRAINE [None]
